FAERS Safety Report 11460005 (Version 5)
Quarter: 2017Q2

REPORT INFORMATION
  Report Type: Report from Study
  Country: GB (occurrence: GB)
  Receive Date: 20150904
  Receipt Date: 20170530
  Transmission Date: 20170829
  Serious: Yes (Hospitalization)
  Sender: FDA-Public Use
  Company Number: GB-AMGEN-GBRSL2015090292

PATIENT
  Age: 85 Year
  Sex: Female

DRUGS (1)
  1. ARANESP [Suspect]
     Active Substance: DARBEPOETIN ALFA
     Indication: PRODUCT USED FOR UNKNOWN INDICATION
     Dosage: 30 MUG, QMO
     Route: 065

REACTIONS (4)
  - Blood pressure abnormal [Not Recovered/Not Resolved]
  - Myocardial infarction [Unknown]
  - Cataract operation [Unknown]
  - Mineral supplementation [Unknown]

NARRATIVE: CASE EVENT DATE: 201508
